FAERS Safety Report 15106408 (Version 2)
Quarter: 2018Q3

REPORT INFORMATION
  Report Type: Report from Study
  Country: None (occurrence: DE)
  Receive Date: 20180704
  Receipt Date: 20180711
  Transmission Date: 20181010
  Serious: Yes (Hospitalization, Disabling)
  Sender: FDA-Public Use
  Company Number: DE-BAUSCH-BL-2018-017844

PATIENT
  Age: 66 Year
  Sex: Male
  Weight: 79 kg

DRUGS (10)
  1. VEMURAFENIB. [Suspect]
     Active Substance: VEMURAFENIB
     Route: 048
     Dates: start: 20180404, end: 20180423
  2. COBIMETINIB. [Suspect]
     Active Substance: COBIMETINIB
     Indication: MALIGNANT MELANOMA
     Route: 048
     Dates: start: 20180320, end: 20180401
  3. VEMURAFENIB. [Suspect]
     Active Substance: VEMURAFENIB
     Indication: MALIGNANT MELANOMA
     Route: 048
     Dates: start: 20180320, end: 20180401
  4. CLOBETASOL PROPIONAT [Concomitant]
     Indication: PRODUCT USED FOR UNKNOWN INDICATION
     Route: 061
     Dates: start: 20180319
  5. LEVETIRACETAM. [Concomitant]
     Active Substance: LEVETIRACETAM
     Indication: EPILEPSY
     Route: 048
     Dates: start: 20180201, end: 20180313
  6. PANTOZOL [Concomitant]
     Active Substance: PANTOPRAZOLE SODIUM
     Indication: PRODUCT USED FOR UNKNOWN INDICATION
     Route: 048
     Dates: start: 20180313
  7. CLEXANE [Concomitant]
     Active Substance: ENOXAPARIN SODIUM
     Indication: PRODUCT USED FOR UNKNOWN INDICATION
     Route: 058
     Dates: start: 20180201
  8. DEXAMETHASONE. [Suspect]
     Active Substance: DEXAMETHASONE
     Indication: MALIGNANT MELANOMA
     Route: 048
     Dates: start: 20180201
  9. LEVETIRACETAM. [Concomitant]
     Active Substance: LEVETIRACETAM
     Indication: PARESIS
     Route: 048
     Dates: start: 20180313
  10. COBIMETINIB. [Suspect]
     Active Substance: COBIMETINIB
     Route: 048
     Dates: start: 20180404, end: 20180423

REACTIONS (4)
  - Decreased appetite [Recovered/Resolved]
  - Nausea [Recovered/Resolved]
  - Oral candidiasis [Recovered/Resolved]
  - Seizure [Not Recovered/Not Resolved]

NARRATIVE: CASE EVENT DATE: 20180331
